FAERS Safety Report 9348493 (Version 1)
Quarter: 2013Q2

REPORT INFORMATION
  Report Type: Report from Study
  Country: BR (occurrence: BR)
  Receive Date: 20130614
  Receipt Date: 20130614
  Transmission Date: 20140414
  Serious: Yes (Other)
  Sender: FDA-Public Use
  Company Number: BR-BAYER-2013-070537

PATIENT
  Sex: Female

DRUGS (1)
  1. BETAFERON [Suspect]
     Dosage: UNK
     Route: 058
     Dates: start: 2009

REACTIONS (5)
  - Localised infection [Not Recovered/Not Resolved]
  - Hypersensitivity [Recovering/Resolving]
  - Hypersensitivity [Not Recovered/Not Resolved]
  - Pain [None]
  - Muscle disorder [None]
